FAERS Safety Report 15234630 (Version 1)
Quarter: 2018Q3

REPORT INFORMATION
  Report Type: Spontaneous
  Country: US (occurrence: US)
  Receive Date: 20180803
  Receipt Date: 20180803
  Transmission Date: 20181010
  Serious: No
  Sender: FDA-Public Use
  Company Number: US-SHIRE-US201829850

PATIENT
  Age: 16 Year
  Sex: Female

DRUGS (1)
  1. VPRIV [Suspect]
     Active Substance: VELAGLUCERASE ALFA
     Indication: GAUCHER^S DISEASE
     Dosage: START VPRIV ABOUT 5 YEARS AGO
     Route: 065

REACTIONS (3)
  - Menorrhagia [Unknown]
  - Anaemia [Unknown]
  - Mood swings [Unknown]
